FAERS Safety Report 15498001 (Version 3)
Quarter: 2018Q4

REPORT INFORMATION
  Report Type: Spontaneous
  Country: JP (occurrence: JP)
  Receive Date: 20181015
  Receipt Date: 20181204
  Transmission Date: 20190205
  Serious: Yes (Other)
  Sender: FDA-Public Use
  Company Number: JP-ROCHE-2197874

PATIENT
  Age: 42 Year
  Sex: Female
  Weight: 55.8 kg

DRUGS (2)
  1. XOLAIR [Suspect]
     Active Substance: OMALIZUMAB
     Dosage: 300 MG, UNK
     Route: 058
     Dates: start: 20180919, end: 20180919
  2. XOLAIR [Suspect]
     Active Substance: OMALIZUMAB
     Indication: CHRONIC SPONTANEOUS URTICARIA
     Dosage: 300 MG, UNK
     Route: 058
     Dates: start: 20180822, end: 20180919

REACTIONS (6)
  - Presyncope [Unknown]
  - Haemorrhage [Unknown]
  - Fall [Unknown]
  - Anaphylactic reaction [Recovered/Resolved with Sequelae]
  - Pain in extremity [Recovered/Resolved]
  - Skin laceration [Unknown]

NARRATIVE: CASE EVENT DATE: 20180919
